FAERS Safety Report 18342866 (Version 1)
Quarter: 2020Q4

REPORT INFORMATION
  Report Type: Spontaneous
  Country: US (occurrence: US)
  Receive Date: 20201002
  Receipt Date: 20201002
  Transmission Date: 20210113
  Serious: No
  Sender: FDA-Public Use
  Company Number: None

PATIENT
  Age: 79 Year
  Sex: Male
  Weight: 71.53 kg

DRUGS (1)
  1. XELJANZ XR [Suspect]
     Active Substance: TOFACITINIB CITRATE
     Indication: RHEUMATOID ARTHRITIS
     Dosage: OTHER DOSE:TAKE 1 TABLET;  AS DIRECTED?
     Route: 048
     Dates: start: 201911

REACTIONS (5)
  - Blood pressure decreased [None]
  - Loss of consciousness [None]
  - Head injury [None]
  - Transient ischaemic attack [None]
  - Memory impairment [None]
